FAERS Safety Report 7767088 (Version 15)
Quarter: 2018Q1

REPORT INFORMATION
  Report Type: Report from Study
  Country: CA (occurrence: CA)
  Receive Date: 20110120
  Receipt Date: 20180216
  Transmission Date: 20180509
  Serious: Yes (Other)
  Sender: FDA-Public Use
  Company Number: PHHY2011CA03045

PATIENT
  Age: 51 Year
  Sex: Female

DRUGS (1)
  1. SANDOSTATIN LAR DEPOT [Suspect]
     Active Substance: OCTREOTIDE ACETATE
     Indication: CARCINOID TUMOUR
     Dosage: 30 MG, EVERY 4 WEEKS
     Route: 030
     Dates: start: 20040616

REACTIONS (18)
  - Diarrhoea [Unknown]
  - Abdominal distension [Recovered/Resolved]
  - Flushing [Unknown]
  - Abdominal pain [Recovered/Resolved]
  - Feeling hot [Recovered/Resolved]
  - Blood pressure increased [Unknown]
  - Gastrointestinal disorder [Unknown]
  - Cystitis [Recovered/Resolved]
  - Vomiting [Recovered/Resolved]
  - Anxiety [Unknown]
  - Stress [Unknown]
  - Sinusitis [Unknown]
  - Headache [Unknown]
  - Nausea [Unknown]
  - Weight decreased [Unknown]
  - Abdominal discomfort [Unknown]
  - Heart rate decreased [Unknown]
  - Malaise [Unknown]

NARRATIVE: CASE EVENT DATE: 20101220
